APPROVED DRUG PRODUCT: GABAPENTIN
Active Ingredient: GABAPENTIN
Strength: 250MG/5ML
Dosage Form/Route: SOLUTION;ORAL
Application: A076672 | Product #001
Applicant: TARO PHARMACEUTICAL INDUSTRIES LTD
Approved: Jul 3, 2013 | RLD: No | RS: No | Type: DISCN